FAERS Safety Report 15833398 (Version 1)
Quarter: 2020Q3

REPORT INFORMATION
  Report Type: Spontaneous
  Country: DE (occurrence: DE)
  Receive Date: 20190116
  Receipt Date: 20190116
  Transmission Date: 20201104
  Serious: Yes (Other)
  Sender: FDA-Public Use
  Company Number: IND-DE-009507513-1901DEU004744

PATIENT
  Age: 35 Year
  Sex: Male
  Weight: 75 kg

DRUGS (1)
  1. ETORICOXIB. [Suspect]
     Active Substance: ETORICOXIB
     Dosage: 90 MILLIGRAM, QD
     Route: 048
     Dates: start: 20181206, end: 20181206

REACTIONS (1)
  - Epidermolysis [Recovered/Resolved]

NARRATIVE: CASE EVENT DATE: 20181206
